FAERS Safety Report 6501559-0 (Version None)
Quarter: 2009Q4

REPORT INFORMATION
  Report Type: 
  Country: None (occurrence: None)
  Receive Date: 20091216
  Receipt Date: 20091202
  Transmission Date: 20100525
  Serious: Yes (Hospitalization)
  Sender: FDA-Public Use
  Company Number: D0065032A

PATIENT
  Sex: Male
  Weight: 100 kg

DRUGS (3)
  1. MELPHALAN [Suspect]
     Indication: MULTIPLE MYELOMA
     Dosage: 30MG PER DAY
     Route: 042
     Dates: start: 20090618, end: 20090716
  2. DECORTIN [Suspect]
     Indication: MULTIPLE MYELOMA
     Dosage: 100MG PER DAY
     Route: 048
     Dates: start: 20090618, end: 20090719
  3. PREDNISOLONE [Concomitant]
     Indication: POLYARTHRITIS
     Route: 065

REACTIONS (1)
  - PYREXIA [None]
